FAERS Safety Report 7364916-9 (Version None)
Quarter: 2011Q1

REPORT INFORMATION
  Report Type: 
  Country: None (occurrence: None)
  Receive Date: 20110316
  Receipt Date: 20110316
  Transmission Date: 20110831
  Serious: Yes (Other)
  Sender: FDA-Public Use
  Company Number: None

PATIENT
  Sex: Male
  Weight: 92.9874 kg

DRUGS (3)
  1. ZYPREXA [Suspect]
     Indication: BIPOLAR DISORDER
     Dosage: 10 MG TAB DAILY
     Dates: start: 20110110
  2. LAMOTRIGINE [Suspect]
     Indication: BIPOLAR DISORDER
     Dosage: 100 MG TAB DAILY
  3. AMBIEN [Concomitant]

REACTIONS (8)
  - COUGH [None]
  - VOMITING [None]
  - SOMNOLENCE [None]
  - DRY MOUTH [None]
  - DIPLOPIA [None]
  - SALIVARY HYPERSECRETION [None]
  - DYSPHAGIA [None]
  - BACK PAIN [None]
